FAERS Safety Report 22143246 (Version 1)
Quarter: 2023Q1

REPORT INFORMATION
  Report Type: Spontaneous
  Country: IN (occurrence: IN)
  Receive Date: 20230327
  Receipt Date: 20230327
  Transmission Date: 20230418
  Serious: Yes (Hospitalization, Other)
  Sender: FDA-Public Use
  Company Number: IN-MLMSERVICE-20230308-4149168-1

PATIENT
  Age: 29 Year
  Sex: Male

DRUGS (1)
  1. OLANZAPINE PAMOATE [Suspect]
     Active Substance: OLANZAPINE PAMOATE
     Indication: Schizophrenia
     Dosage: 300 MG, UNKNOWN
     Route: 065

REACTIONS (7)
  - Hyponatraemia [Recovering/Resolving]
  - Hyperventilation [Unknown]
  - Vomiting [Recovering/Resolving]
  - Restlessness [Unknown]
  - Post-injection delirium sedation syndrome [Recovering/Resolving]
  - Somnolence [Unknown]
  - Disorientation [Unknown]
